FAERS Safety Report 8047451-4 (Version None)
Quarter: 2012Q1

REPORT INFORMATION
  Report Type: 
  Country: None (occurrence: None)
  Receive Date: 20120116
  Receipt Date: 20120106
  Transmission Date: 20120608
  Serious: Yes (Hospitalization)
  Sender: FDA-Public Use
  Company Number: US-JNJFOC-20120102248

PATIENT
  Sex: Female
  Weight: 47.27 kg

DRUGS (10)
  1. REMICADE [Suspect]
     Route: 042
     Dates: start: 20120101
  2. PRILOSEC [Concomitant]
  3. CORTIFOAM [Concomitant]
     Route: 061
  4. REMICADE [Suspect]
     Indication: CROHN'S DISEASE
     Route: 042
  5. REMICADE [Suspect]
     Indication: INFLAMMATORY BOWEL DISEASE
     Route: 042
  6. AMOXICILLIN [Concomitant]
  7. MULTI-VITAMINS [Concomitant]
  8. REMICADE [Suspect]
     Route: 042
     Dates: start: 20120101
  9. MIRALAX [Concomitant]
  10. CALCIUM [Concomitant]

REACTIONS (1)
  - CROHN'S DISEASE [None]
